FAERS Safety Report 16255955 (Version 1)
Quarter: 2019Q2

REPORT INFORMATION
  Report Type: Spontaneous
  Country: US (occurrence: US)
  Receive Date: 20190430
  Receipt Date: 20190430
  Transmission Date: 20190711
  Serious: Yes (Hospitalization, Other)
  Sender: FDA-Public Use
  Company Number: US-PFIZER INC-2019177972

PATIENT
  Age: 69 Year
  Sex: Male

DRUGS (2)
  1. IBUPROFEN. [Suspect]
     Active Substance: IBUPROFEN
     Indication: BACK PAIN
     Dosage: UNK, DAILY (TWO TO THREE PILLS OF IBUPROFEN ALMOST ON A DAILY BASIS)
  2. PREDNISONE. [Suspect]
     Active Substance: PREDNISONE
     Indication: ASTHMA
     Dosage: UNK (SHORT COURSES, FREQUENTLY IN THE LAST 6 MONTHS)

REACTIONS (4)
  - Duodenal ulcer haemorrhage [Recovering/Resolving]
  - Peptic ulcer [Recovering/Resolving]
  - Fistula of small intestine [Recovering/Resolving]
  - Haemoglobin decreased [Recovering/Resolving]
